FAERS Safety Report 5902015-0 (Version None)
Quarter: 2008Q3

REPORT INFORMATION
  Report Type: 
  Country: None (occurrence: None)
  Receive Date: 20080909
  Receipt Date: 20080423
  Transmission Date: 20090109
  Serious: Yes (Other)
  Sender: FDA-Public Use
  Company Number: US-WYE-H03827808

PATIENT
  Sex: Female

DRUGS (8)
  1. ADVIL [Suspect]
     Indication: ARTHRALGIA
     Dosage: ORAL
     Route: 048
     Dates: start: 20080417
  2. ASPIRIN [Concomitant]
  3. MYANTA (ALUMINIUM HYDROXIDE GEL, DRIED/DIMETICONE, ACTIVATED/MAGNESIUM [Concomitant]
  4. PRILOSEC [Concomitant]
  5. PEPCID [Concomitant]
  6. ALPRAZOLAM [Concomitant]
  7. SINGULAIR [Concomitant]
  8. ADVAIR DISKUS 100/50 [Concomitant]

REACTIONS (1)
  - GASTROOESOPHAGEAL REFLUX DISEASE [None]
